FAERS Safety Report 21212639 (Version 1)
Quarter: 2022Q3

REPORT INFORMATION
  Report Type: Spontaneous
  Country: US (occurrence: None)
  Receive Date: 20220814
  Receipt Date: 20220814
  Transmission Date: 20221027
  Serious: Yes (Disabling, Other)
  Sender: FDA-Public Use
  Company Number: None

PATIENT
  Age: 51 Year
  Sex: Female
  Weight: 57.6 kg

DRUGS (2)
  1. PAROXETINE [Suspect]
     Active Substance: PAROXETINE
     Dosage: FREQUENCY : DAILY;?
     Route: 048
     Dates: start: 20220420, end: 20220810
  2. PAROXETINE [Concomitant]
     Active Substance: PAROXETINE
     Dates: start: 20220320, end: 20220801

REACTIONS (1)
  - Retinopathy [None]

NARRATIVE: CASE EVENT DATE: 20220802
